FAERS Safety Report 7396204-9 (Version None)
Quarter: 2011Q2

REPORT INFORMATION
  Report Type: 
  Country: None (occurrence: None)
  Receive Date: 20110406
  Receipt Date: 20110328
  Transmission Date: 20111010
  Serious: Yes (Hospitalization)
  Sender: FDA-Public Use
  Company Number: FR-ASTELLAS-2011EU001693

PATIENT
  Sex: Female

DRUGS (19)
  1. PROGRAF [Suspect]
     Indication: LUNG TRANSPLANT
     Dosage: 4 MG, BID
     Route: 048
     Dates: start: 20110205
  2. ATENOLOL [Concomitant]
     Dosage: 1 DF, BID
     Route: 065
  3. NEXIUM [Concomitant]
     Dosage: 40 MG, UID/QD
     Route: 065
  4. PROGRAF [Suspect]
     Dosage: 2 MG, BID
     Route: 048
     Dates: start: 20110214
  5. NOVORAPID [Concomitant]
     Dosage: UNK
     Route: 065
  6. ROVALCYTE [Concomitant]
     Dosage: 1 DF, OTHER
     Route: 065
  7. KEPPRA [Concomitant]
     Dosage: 250 MG, BID
     Route: 065
  8. DEROXAT [Concomitant]
     Dosage: UNK
     Route: 065
  9. EXFORGE [Concomitant]
     Dosage: UNK
     Route: 065
  10. CREON [Concomitant]
     Dosage: 6 DF, UNKNOWN/D
     Route: 065
  11. LEVEMIR [Concomitant]
     Dosage: 14 IU, UNKNOWN/D
     Route: 065
  12. CORTANCYL [Concomitant]
     Dosage: 10 MG, UID/QD
     Route: 065
  13. CELLCEPT [Concomitant]
     Dosage: 2 DF, BID
     Route: 065
  14. LASIX [Concomitant]
     Dosage: UNK
     Route: 065
  15. TERCIAN [Concomitant]
     Dosage: 15 DF, UNKNOWN/D
     Route: 065
  16. RAMIPRIL [Concomitant]
     Dosage: 10 MG, UID/QD
     Route: 065
  17. EUPRESSYL [Concomitant]
     Dosage: 1 DF, TID
     Route: 065
  18. KAYEXALATE [Concomitant]
     Dosage: UNK
     Route: 065
  19. CALCIDIA [Concomitant]
     Dosage: UNK
     Route: 065

REACTIONS (1)
  - ACCIDENTAL OVERDOSE [None]
